FAERS Safety Report 20349217 (Version 1)
Quarter: 2022Q1

REPORT INFORMATION
  Report Type: Spontaneous
  Country: US (occurrence: None)
  Receive Date: 20220118
  Receipt Date: 20220118
  Transmission Date: 20220423
  Serious: No
  Sender: FDA-Public Use
  Company Number: None

PATIENT
  Age: 30 Year
  Sex: Male
  Weight: 90.72 kg

DRUGS (1)
  1. HOMEOPATHICS [Suspect]
     Active Substance: HOMEOPATHICS
     Route: 048
     Dates: start: 20160301, end: 20220116

REACTIONS (12)
  - Substance use [None]
  - Drug dependence [None]
  - Hallucination [None]
  - Abnormal behaviour [None]
  - Aggression [None]
  - Anger [None]
  - Physical product label issue [None]
  - Job dissatisfaction [None]
  - Drug withdrawal syndrome [None]
  - Mental disorder [None]
  - Lethargy [None]
  - Weight decreased [None]

NARRATIVE: CASE EVENT DATE: 20160301
